FAERS Safety Report 8091040-2 (Version None)
Quarter: 2012Q1

REPORT INFORMATION
  Report Type: 
  Country: None (occurrence: None)
  Receive Date: 20120130
  Receipt Date: 20120130
  Transmission Date: 20120608
  Serious: Yes (Hospitalization)
  Sender: FDA-Public Use
  Company Number: None

PATIENT
  Age: 77 Year
  Sex: Male
  Weight: 98.2 kg

DRUGS (3)
  1. LISINOPRIL [Suspect]
     Indication: HYPERTENSION
     Dosage: 10 MG EVERY DAY PO : 325 MG EVERY DAY PO
     Route: 048
     Dates: start: 20110526, end: 20111012
  2. LISINOPRIL [Suspect]
     Indication: CARDIAC OPERATION
     Dosage: 10 MG EVERY DAY PO : 325 MG EVERY DAY PO
     Route: 048
     Dates: start: 20110526, end: 20111012
  3. LISINOPRIL [Suspect]
     Indication: CARDIAC FAILURE CONGESTIVE
     Dosage: 10 MG EVERY DAY PO : 325 MG EVERY DAY PO
     Route: 048
     Dates: start: 20110526, end: 20111012

REACTIONS (1)
  - ANGIOEDEMA [None]
